FAERS Safety Report 14367951 (Version 1)
Quarter: 2018Q1

REPORT INFORMATION
  Report Type: Spontaneous
  Country: US (occurrence: US)
  Receive Date: 20180109
  Receipt Date: 20180109
  Transmission Date: 20180509
  Serious: No
  Sender: FDA-Public Use
  Company Number: US-ALLERGAN-1754641US

PATIENT
  Sex: Female

DRUGS (1)
  1. DALVANCE [Suspect]
     Active Substance: DALBAVANCIN
     Indication: STAPHYLOCOCCAL INFECTION
     Dosage: 1500 MG, OVER 45 MINUTES
     Route: 042
     Dates: start: 201709

REACTIONS (2)
  - Rash [Recovered/Resolved]
  - Infusion site thrombosis [Recovered/Resolved]
